FAERS Safety Report 4656816-X (Version None)
Quarter: 2005Q2

REPORT INFORMATION
  Report Type: 
  Country: None (occurrence: None)
  Receive Date: 20050505
  Receipt Date: 20050425
  Transmission Date: 20051028
  Serious: Yes (Death, Life-Threatening)
  Sender: FDA-Public Use
  Company Number: 2004CG00539

PATIENT
  Age: 3 Year
  Sex: Female
  Weight: 15 kg

DRUGS (2)
  1. FLUOTHANE [Suspect]
     Indication: GENERAL ANAESTHESIA
     Dates: start: 20040211, end: 20040211
  2. DIPRIVAN [Suspect]
     Indication: GENERAL ANAESTHESIA
     Dosage: 1.3 MG/KG ONCE IV
     Route: 042
     Dates: start: 20040211, end: 20040211

REACTIONS (13)
  - BLOOD PRESSURE IMMEASURABLE [None]
  - BRADYCARDIA [None]
  - BRAIN OEDEMA [None]
  - COMA [None]
  - CONGESTIVE CARDIOMYOPATHY [None]
  - DELAYED RECOVERY FROM ANAESTHESIA [None]
  - EYE MOVEMENT DISORDER [None]
  - HYPERTONIA [None]
  - NEUROLOGICAL SYMPTOM [None]
  - OPISTHOTONUS [None]
  - PROCEDURAL COMPLICATION [None]
  - PULSE PRESSURE DECREASED [None]
  - STATUS EPILEPTICUS [None]
